FAERS Safety Report 8807154 (Version 2)
Quarter: 2013Q2

REPORT INFORMATION
  Report Type: Spontaneous
  Country: US (occurrence: US)
  Receive Date: 20120925
  Receipt Date: 20130411
  Transmission Date: 20140414
  Serious: Yes (Hospitalization)
  Sender: FDA-Public Use
  Company Number: US-JUTA-2012-16191

PATIENT
  Age: 60 Year
  Sex: Male

DRUGS (2)
  1. DILTIAZEM HYDROCHLORIDE ER (ACTAVIS INC) [Suspect]
     Dosage: 5400 MG, SINGLE (30 TABS OF 180 MG ER)
     Route: 048
  2. NIFEDIPINE (UNKNOWN) [Suspect]
     Indication: PRODUCT USED FOR UNKNOWN INDICATION
     Dosage: 1800 MG, SINGLE (30 TABS OF 60 MG EACH )
     Route: 048

REACTIONS (13)
  - Hypotension [Recovered/Resolved]
  - Toxicity to various agents [Not Recovered/Not Resolved]
  - Intentional overdose [Not Recovered/Not Resolved]
  - Atrioventricular block first degree [Recovered/Resolved]
  - Electrocardiogram QT prolonged [Recovered/Resolved]
  - Bradycardia [Recovered/Resolved]
  - Hypokalaemia [None]
  - Suicide attempt [None]
  - Intestinal ischaemia [None]
  - Refusal of treatment by patient [None]
  - Renal failure acute [None]
  - Small intestinal obstruction [None]
  - Hypoglycaemia [None]
